FAERS Safety Report 5319149-4 (Version None)
Quarter: 2007Q1

REPORT INFORMATION
  Report Type: 
  Country: None (occurrence: None)
  Receive Date: 20070208
  Receipt Date: 20060406
  Transmission Date: 20070707
  Serious: Yes (Other)
  Sender: FDA-Public Use
  Company Number: 443760

PATIENT
  Age: 13 Month
  Sex: Male
  Weight: 11.8 kg

DRUGS (1)
  1. TAMIFLU [Suspect]
     Indication: INFLUENZA
     Dosage: 30 MG 2 PER DAY ORAL
     Route: 048
     Dates: start: 20060403, end: 20060403

REACTIONS (1)
  - CONVULSION [None]
